FAERS Safety Report 14829991 (Version 1)
Quarter: 2018Q2

REPORT INFORMATION
  Report Type: Spontaneous
  Country: CN (occurrence: CN)
  Receive Date: 20180430
  Receipt Date: 20180430
  Transmission Date: 20180711
  Serious: Yes (Other)
  Sender: FDA-Public Use
  Company Number: CN-EDENBRIDGE PHARMACEUTICALS, LLC-CN-2018EDE000094

PATIENT
  Age: 52 Year
  Sex: Male

DRUGS (3)
  1. SALINE                             /00075401/ [Suspect]
     Active Substance: SODIUM CHLORIDE
     Indication: BACK PAIN
     Dosage: 30 ML, UNK
     Route: 008
     Dates: start: 20160906
  2. LIDOCAINE HCL [Suspect]
     Active Substance: LIDOCAINE HYDROCHLORIDE
     Indication: BACK PAIN
     Dosage: 35 MG, UNK
     Route: 008
     Dates: start: 20160906
  3. PREDNISOLONE SODIUM PHOSPHATE. [Suspect]
     Active Substance: PREDNISOLONE SODIUM PHOSPHATE
     Indication: BACK PAIN
     Dosage: 100 MG, UNK
     Route: 008
     Dates: start: 20160906

REACTIONS (3)
  - Myelitis [Recovering/Resolving]
  - Spinal cord infarction [Recovering/Resolving]
  - Diplegia [Recovering/Resolving]
